FAERS Safety Report 15554281 (Version 1)
Quarter: 2018Q4

REPORT INFORMATION
  Report Type: Spontaneous
  Country: US (occurrence: US)
  Receive Date: 20181025
  Receipt Date: 20181025
  Transmission Date: 20190205
  Serious: Yes (Hospitalization)
  Sender: FDA-Public Use
  Company Number: None

PATIENT
  Age: 72 Year
  Sex: Male
  Weight: 64.3 kg

DRUGS (1)
  1. NIVOLUMAB [Suspect]
     Active Substance: NIVOLUMAB
     Indication: CHOLANGIOCARCINOMA
     Dosage: ?          OTHER FREQUENCY:Q4WEEKS;?
     Route: 041
     Dates: start: 20180501, end: 20180927

REACTIONS (4)
  - Vomiting [None]
  - Septic shock [None]
  - Nausea [None]
  - Chills [None]

NARRATIVE: CASE EVENT DATE: 20181023
